FAERS Safety Report 7769948-4 (Version None)
Quarter: 2011Q3

REPORT INFORMATION
  Report Type: 
  Country: None (occurrence: None)
  Receive Date: 20110922
  Receipt Date: 20110919
  Transmission Date: 20111222
  Serious: Yes (Other)
  Sender: FDA-Public Use
  Company Number: CA-GLAXOSMITHKLINE-A0945046A

PATIENT
  Age: 28 Year
  Sex: Female

DRUGS (1)
  1. LAMICTAL [Suspect]
     Indication: PRODUCT USED FOR UNKNOWN INDICATION
     Route: 065
     Dates: start: 20110728

REACTIONS (2)
  - APHASIA [None]
  - DISTURBANCE IN ATTENTION [None]
